FAERS Safety Report 8283886 (Version 8)
Quarter: 2014Q4

REPORT INFORMATION
  Report Type: Report from Study
  Country: CA (occurrence: CA)
  Receive Date: 20111212
  Receipt Date: 20141203
  Transmission Date: 20150529
  Serious: Yes (Other)
  Sender: FDA-Public Use
  Company Number: PHHY2011CA62300

PATIENT
  Age: 72 Year
  Sex: Female

DRUGS (2)
  1. SANDOSTATIN LAR DEPOT [Suspect]
     Active Substance: OCTREOTIDE ACETATE
     Indication: NEUROENDOCRINE TUMOUR
     Dosage: 40 MG, EVERY 4 WEEKS
     Route: 030
     Dates: start: 20110607
  2. SANDOSTATIN LAR DEPOT [Suspect]
     Active Substance: OCTREOTIDE ACETATE
     Dosage: 30 MG, EVERY 4 WEEKS
     Route: 030

REACTIONS (15)
  - Pain in extremity [Unknown]
  - Palpitations [Unknown]
  - Asthenia [Unknown]
  - Bursitis [Unknown]
  - Pruritus [Unknown]
  - Alopecia [Unknown]
  - Spinal column stenosis [Unknown]
  - Musculoskeletal pain [Unknown]
  - Pain [Unknown]
  - Body temperature decreased [Unknown]
  - Back pain [Unknown]
  - Heart rate decreased [Unknown]
  - Hepatic neoplasm [Unknown]
  - Scar [Recovering/Resolving]
  - Inflammation [Unknown]

NARRATIVE: CASE EVENT DATE: 20141029
